FAERS Safety Report 10071646 (Version 1)
Quarter: 2014Q2

REPORT INFORMATION
  Report Type: Report from Study
  Country: CA (occurrence: CA)
  Receive Date: 20140411
  Receipt Date: 20140411
  Transmission Date: 20141212
  Serious: Yes (Other)
  Sender: FDA-Public Use
  Company Number: CA-ROCHE-1380290

PATIENT
  Sex: Male

DRUGS (3)
  1. PEGASYS [Suspect]
     Indication: CHRONIC HEPATITIS C
     Dosage: 0.5 ML PRE-FILLED SYRINGE
     Route: 058
     Dates: start: 20130709, end: 20140407
  2. COPEGUS [Suspect]
     Indication: CHRONIC HEPATITIS C
     Dosage: 35 TABLET/WEEK
     Route: 048
     Dates: start: 20130709, end: 20140407
  3. INCIVEK [Suspect]
     Indication: CHRONIC HEPATITIS C
     Route: 048
     Dates: start: 20130709, end: 20140407

REACTIONS (1)
  - Platelet disorder [Unknown]
